FAERS Safety Report 9917263 (Version 2)
Quarter: 2014Q1

REPORT INFORMATION
  Report Type: Report from Study
  Country: US (occurrence: US)
  Receive Date: 20140221
  Receipt Date: 20140310
  Transmission Date: 20141002
  Serious: Yes (Other)
  Sender: FDA-Public Use
  Company Number: US-PURDUE-USA-2014-0111299

PATIENT
  Age: 49 Year
  Sex: Female

DRUGS (3)
  1. OXY CR TAB [Suspect]
     Indication: PAIN
     Dosage: 30 MG, UNK
     Route: 048
  2. OXY CR TAB [Suspect]
     Dosage: 40 MG, UNK
     Route: 048
  3. ZANAFLEX [Suspect]
     Indication: MUSCLE RELAXANT THERAPY

REACTIONS (6)
  - VIIth nerve paralysis [Unknown]
  - Hypoaesthesia [Unknown]
  - Speech disorder [Unknown]
  - Syncope [Unknown]
  - Asthenia [Unknown]
  - Drug ineffective [Unknown]
